FAERS Safety Report 9346994 (Version 1)
Quarter: 2013Q2

REPORT INFORMATION
  Report Type: Spontaneous
  Country: MX (occurrence: MX)
  Receive Date: 20130613
  Receipt Date: 20130613
  Transmission Date: 20140414
  Serious: Yes (Hospitalization, Other)
  Sender: FDA-Public Use
  Company Number: PHHY2011MX37543

PATIENT
  Age: 6 Year
  Sex: Male

DRUGS (1)
  1. SULFAMETHOXAZOLE, TRIMETHOPRIM [Suspect]
     Indication: PNEUMOCYSTIS JIROVECII INFECTION
     Dosage: UNK UKN, UNK

REACTIONS (4)
  - Angioedema [Recovered/Resolved]
  - Urticaria [Recovered/Resolved]
  - Conjunctival hyperaemia [Recovered/Resolved]
  - Nasal discomfort [Recovered/Resolved]
